FAERS Safety Report 9874651 (Version 2)
Quarter: 2014Q1

REPORT INFORMATION
  Report Type: Spontaneous
  Country: JP (occurrence: JP)
  Receive Date: 20140206
  Receipt Date: 20140212
  Transmission Date: 20141002
  Serious: Yes (Hospitalization)
  Sender: FDA-Public Use
  Company Number: PHHY2014JP011881

PATIENT
  Sex: Male

DRUGS (4)
  1. 5-FLUOROURACIL [Suspect]
     Indication: COLORECTAL CANCER METASTATIC
     Dosage: 400 MG/M2, UNK
     Route: 040
  2. 5-FLUOROURACIL [Suspect]
     Dosage: 2400 MG/M2, UNK
     Route: 041
  3. OXALIPLATIN [Concomitant]
     Indication: COLORECTAL CANCER METASTATIC
     Dosage: 85 MG/M2, UNK
  4. LEUCOVORIN [Concomitant]
     Indication: COLORECTAL CANCER METASTATIC
     Dosage: 200 MG/M2, UNK

REACTIONS (6)
  - Hyperammonaemic encephalopathy [Recovered/Resolved]
  - Nausea [Unknown]
  - Vomiting [Unknown]
  - Altered state of consciousness [Recovered/Resolved]
  - Confusional state [Unknown]
  - Cognitive disorder [Unknown]
